FAERS Safety Report 18462331 (Version 1)
Quarter: 2020Q4

REPORT INFORMATION
  Report Type: Spontaneous
  Country: FR (occurrence: FR)
  Receive Date: 20201104
  Receipt Date: 20201104
  Transmission Date: 20210114
  Serious: Yes (Other)
  Sender: FDA-Public Use
  Company Number: FR-OTSUKA-2020_027109

PATIENT
  Age: 60 Year
  Sex: Male
  Weight: 64 kg

DRUGS (3)
  1. THYMOGLOBULINE [Concomitant]
     Active Substance: LAPINE T-LYMPHOCYTE IMMUNE GLOBULIN
     Indication: BONE MARROW CONDITIONING REGIMEN
     Dosage: UNK
     Route: 065
     Dates: start: 20200927, end: 20200929
  2. BUSULFAN. [Suspect]
     Active Substance: BUSULFAN
     Indication: BONE MARROW CONDITIONING REGIMEN
     Dosage: 204.8 MG, UNK
     Route: 042
     Dates: start: 20200926, end: 20200926
  3. FLUDARABINE [Concomitant]
     Active Substance: FLUDARABINE PHOSPHATE
     Indication: BONE MARROW CONDITIONING REGIMEN
     Dosage: UNK
     Route: 065
     Dates: start: 20200924, end: 20200928

REACTIONS (2)
  - Product preparation error [Unknown]
  - Investigation [Unknown]

NARRATIVE: CASE EVENT DATE: 20200926
